FAERS Safety Report 13024191 (Version 2)
Quarter: 2017Q1

REPORT INFORMATION
  Report Type: Spontaneous
  Country: BR (occurrence: BR)
  Receive Date: 20161213
  Receipt Date: 20170202
  Transmission Date: 20170428
  Serious: Yes (Other)
  Sender: FDA-Public Use
  Company Number: BR-JNJFOC-20160704408

PATIENT
  Sex: Male
  Weight: 75 kg

DRUGS (5)
  1. HALDOL [Suspect]
     Active Substance: HALOPERIDOL
     Indication: FEELING ABNORMAL
     Dosage: 35 DROPS
     Route: 048
  2. HALDOL [Suspect]
     Active Substance: HALOPERIDOL
     Indication: SCHIZOPHRENIA
     Dosage: 35 DROPS
     Route: 048
  3. HALDOL [Suspect]
     Active Substance: HALOPERIDOL
     Indication: DELIRIUM
     Dosage: 35 DROPS
     Route: 048
  4. HALDOL [Suspect]
     Active Substance: HALOPERIDOL
     Indication: NERVOUSNESS
     Dosage: 35 DROPS
     Route: 048
  5. LONGACTIL [Concomitant]
     Active Substance: CHLORPROMAZINE HYDROCHLORIDE
     Indication: PRODUCT USED FOR UNKNOWN INDICATION
     Route: 065

REACTIONS (12)
  - Product use issue [Unknown]
  - Product packaging issue [Unknown]
  - Dyspnoea [Unknown]
  - Underdose [Unknown]
  - Weight increased [Unknown]
  - Tachycardia [Unknown]
  - Dry throat [Unknown]
  - Hypersensitivity [Unknown]
  - Photosensitivity reaction [Unknown]
  - Dry mouth [Unknown]
  - Drug ineffective for unapproved indication [Unknown]
  - Drug dose omission [Unknown]
